FAERS Safety Report 7333076-2 (Version None)
Quarter: 2011Q1

REPORT INFORMATION
  Report Type: 
  Country: None (occurrence: None)
  Receive Date: 20110304
  Receipt Date: 20110218
  Transmission Date: 20110831
  Serious: Yes (Hospitalization, Other)
  Sender: FDA-Public Use
  Company Number: US-CELGENEUS-163-21880-11022667

PATIENT
  Sex: Male

DRUGS (12)
  1. REVLIMID [Suspect]
     Dosage: 5 MILLIGRAM
     Route: 048
     Dates: start: 20100226, end: 20100101
  2. DEXAMETHASONE [Concomitant]
     Dosage: 20 MILLIGRAM
     Route: 065
     Dates: start: 20091013, end: 20100101
  3. REVLIMID [Suspect]
     Dosage: 50 MILLIGRAM
     Route: 048
     Dates: start: 20100510, end: 20100101
  4. DEXAMETHASONE [Concomitant]
     Dosage: 12 MILLIGRAM
     Route: 065
     Dates: start: 20100226, end: 20100101
  5. REVLIMID [Suspect]
     Indication: MULTIPLE MYELOMA
     Dosage: 5 MILLIGRAM
     Route: 048
     Dates: start: 20081119, end: 20090101
  6. VELCADE [Concomitant]
     Dosage: 1.3 MILLIGRAM/SQ. METER
     Route: 065
     Dates: start: 20091013, end: 20100101
  7. VELCADE [Concomitant]
     Dosage: 1.3 MILLIGRAM/SQ. METER
     Route: 065
     Dates: start: 20100715, end: 20100101
  8. MELPHALAN [Concomitant]
     Dosage: 120
     Route: 065
     Dates: start: 20100715, end: 20100101
  9. DEXAMETHASONE [Concomitant]
     Dosage: 40 MILLIGRAM
     Route: 065
     Dates: start: 20100715, end: 20100101
  10. REVLIMID [Suspect]
     Dosage: 50 MILLIGRAM
     Route: 048
     Dates: start: 20100614, end: 20100601
  11. REVLIMID [Suspect]
     Dosage: 100 MILLIGRAM
     Route: 048
     Dates: start: 20100715, end: 20100101
  12. REVLIMID [Suspect]
     Dosage: 5 MILLIGRAM
     Route: 048
     Dates: start: 20091013, end: 20100101

REACTIONS (3)
  - PANCYTOPENIA [None]
  - DRUG INEFFECTIVE [None]
  - C-REACTIVE PROTEIN INCREASED [None]
